FAERS Safety Report 8624453-8 (Version None)
Quarter: 2012Q3

REPORT INFORMATION
  Report Type: 
  Country: None (occurrence: None)
  Receive Date: 20120827
  Receipt Date: 20120820
  Transmission Date: 20120928
  Serious: Yes (Hospitalization, Other)
  Sender: FDA-Public Use
  Company Number: US-PFIZER INC-2011316886

PATIENT
  Age: 72 Year
  Sex: Male
  Weight: 125.1 kg

DRUGS (3)
  1. SUTENT [Suspect]
     Indication: RENAL CANCER METASTATIC
     Dosage: 37.5 MG (12.5 MG + 25 MG), 1X/DAY, 4 WEEKS ON/2 WEEKS OFF
     Route: 048
     Dates: start: 20111121, end: 20111211
  2. SUTENT [Suspect]
     Dosage: 37.5 MG, 1X/DAY, 37.5 MG (12.5 MG + 25 MG), 1X/DAY, 2 WEEKS ON/1 WEEKS OFF
     Route: 048
     Dates: start: 20120502
  3. SUTENT [Suspect]
     Dosage: 37.5 MG, 1X/DAY, 4 WEEKS ON/2 WEEKS OFF
     Route: 048

REACTIONS (14)
  - FEELING ABNORMAL [None]
  - GALLBLADDER DISORDER [None]
  - SKIN SWELLING [None]
  - NECK MASS [None]
  - UPPER RESPIRATORY TRACT INFECTION [None]
  - DYSPNOEA [None]
  - PANCYTOPENIA [None]
  - FATIGUE [None]
  - ARTHROPOD BITE [None]
  - PAIN IN EXTREMITY [None]
  - FEELING HOT [None]
  - CHEST PAIN [None]
  - STOMATITIS [None]
  - BREATH SOUNDS ABNORMAL [None]
